FAERS Safety Report 5222046-6 (Version None)
Quarter: 2007Q1

REPORT INFORMATION
  Report Type: 
  Country: None (occurrence: None)
  Receive Date: 20070129
  Receipt Date: 20060622
  Transmission Date: 20070707
  Serious: No
  Sender: FDA-Public Use
  Company Number: US017070

PATIENT
  Age: 53 Year
  Sex: Female

DRUGS (6)
  1. WELLBUTRIN [Suspect]
     Indication: DRUG USE FOR UNKNOWN INDICATION
     Route: 048
     Dates: start: 20050101
  2. PROVIGIL [Suspect]
     Indication: CHRONIC FATIGUE SYNDROME
     Dosage: 300MG PER DAY
     Route: 048
  3. ATENOLOL [Concomitant]
     Dates: start: 20000101
  4. LUNESTA [Concomitant]
  5. PAXIL [Concomitant]
  6. PARAFON FORTE [Concomitant]

REACTIONS (3)
  - BLOOD PRESSURE INCREASED [None]
  - DEPRESSED MOOD [None]
  - DEPRESSION [None]
